FAERS Safety Report 11910292 (Version 1)
Quarter: 2016Q1

REPORT INFORMATION
  Report Type: Spontaneous
  Country: US (occurrence: None)
  Receive Date: 20160111
  Receipt Date: 20160111
  Transmission Date: 20160526
  Serious: Yes (Life-Threatening)
  Sender: FDA-Public Use
  Company Number: None

PATIENT
  Age: 38 Year
  Sex: Female
  Weight: 61.8 kg

DRUGS (4)
  1. AMPHOTERICIN B. [Concomitant]
     Active Substance: AMPHOTERICIN B
  2. FLUCONAZOLE. [Concomitant]
     Active Substance: FLUCONAZOLE
  3. LEVETIRACETAM. [Concomitant]
     Active Substance: LEVETIRACETAM
  4. FLUCYTOSINE. [Suspect]
     Active Substance: FLUCYTOSINE
     Indication: MENINGITIS CRYPTOCOCCAL
     Route: 048

REACTIONS (4)
  - Lung infiltration [None]
  - Pericardial effusion [None]
  - Cardiac tamponade [None]
  - Pleural effusion [None]

NARRATIVE: CASE EVENT DATE: 20160102
